FAERS Safety Report 9504423 (Version 1)
Quarter: 2013Q3

REPORT INFORMATION
  Report Type: Spontaneous
  Country: US (occurrence: US)
  Receive Date: 20130906
  Receipt Date: 20130906
  Transmission Date: 20140515
  Serious: Yes (Hospitalization)
  Sender: FDA-Public Use
  Company Number: US-PURDUE-USA-2013-0105915

PATIENT
  Sex: Female

DRUGS (2)
  1. OXYCONTIN (NDA 22-272) [Suspect]
     Indication: PAIN
     Dosage: 30 MG, TID
     Route: 048
  2. PERCOCET /00446701/ [Suspect]
     Indication: BREAKTHROUGH PAIN
     Dosage: UNK
     Route: 048

REACTIONS (4)
  - Abnormal loss of weight [Unknown]
  - Gastrointestinal disorder [Unknown]
  - Nervousness [Unknown]
  - Hyperhidrosis [Unknown]
